FAERS Safety Report 6503872-X (Version None)
Quarter: 2009Q4

REPORT INFORMATION
  Report Type: 
  Country: None (occurrence: None)
  Receive Date: 20091216
  Receipt Date: 20091216
  Transmission Date: 20100525
  Serious: Yes (Hospitalization)
  Sender: FDA-Public Use
  Company Number: None

PATIENT
  Sex: Male
  Weight: 71 kg

DRUGS (8)
  1. LEUPROLIDE ACETATE [Suspect]
  2. ASPIRIN [Concomitant]
  3. ATENOLOL [Concomitant]
  4. CASODEX [Concomitant]
  5. CLONIDINE [Concomitant]
  6. CRESTOR [Concomitant]
  7. DEGARELIX [Concomitant]
  8. OXYCODONE [Concomitant]

REACTIONS (5)
  - ATRIAL FIBRILLATION [None]
  - BRADYCARDIA [None]
  - HEMIPARESIS [None]
  - LACUNAR INFARCTION [None]
  - LOW DENSITY LIPOPROTEIN INCREASED [None]
